FAERS Safety Report 24845828 (Version 1)
Quarter: 2025Q1

REPORT INFORMATION
  Report Type: Spontaneous
  Country: US (occurrence: None)
  Receive Date: 20250115
  Receipt Date: 20250115
  Transmission Date: 20250408
  Serious: No
  Sender: FDA-CTU
  Company Number: None

PATIENT
  Age: 80 Year
  Sex: Female

DRUGS (1)
  1. THALOMID [Suspect]
     Active Substance: THALIDOMIDE
     Indication: Plasma cell myeloma
     Dosage: FREQUENCY : DAILY;?
     Route: 048
     Dates: start: 20240228

REACTIONS (7)
  - Neutropenia [None]
  - Gallbladder enlargement [None]
  - Gallbladder enlargement [None]
  - Cholelithiasis [None]
  - Mesenteritis [None]
  - Enteritis [None]
  - Cholecystitis [None]

NARRATIVE: CASE EVENT DATE: 20241126
